FAERS Safety Report 5678203-8 (Version None)
Quarter: 2008Q1

REPORT INFORMATION
  Report Type: 
  Country: None (occurrence: None)
  Receive Date: 20080320
  Receipt Date: 20080306
  Transmission Date: 20080703
  Serious: Yes (Hospitalization)
  Sender: FDA-Public Use
  Company Number: A-CH2007-18911

PATIENT
  Age: 69 Year
  Sex: Female

DRUGS (4)
  1. TRACLEER [Suspect]
     Indication: SKIN ULCER
     Dosage: 62.5 MG, BID, ORAL
     Route: 048
     Dates: start: 20070927, end: 20071030
  2. CALCIUM CHANNEL BLOCKERS [Concomitant]
  3. IBUPROFEN [Concomitant]
  4. ANTIBIOTICS [Concomitant]

REACTIONS (3)
  - DISEASE PROGRESSION [None]
  - EXTREMITY NECROSIS [None]
  - SKIN ULCER [None]
